FAERS Safety Report 5854229-6 (Version None)
Quarter: 2008Q3

REPORT INFORMATION
  Report Type: 
  Country: None (occurrence: None)
  Receive Date: 20080822
  Receipt Date: 20080815
  Transmission Date: 20090109
  Serious: Yes (Hospitalization, Other)
  Sender: FDA-Public Use
  Company Number: PHFR2008GB01040

PATIENT
  Sex: Male

DRUGS (3)
  1. CLOZARIL [Suspect]
     Indication: SCHIZOPHRENIA
     Dosage: 100MG MANE, 250MG NOCTE
     Route: 048
     Dates: start: 20080213
  2. CLOZARIL [Suspect]
     Indication: PSYCHOTIC DISORDER
     Dosage: 400 MG/DAILY
     Route: 048
     Dates: end: 20080808
  3. OMEPRAZOLE [Concomitant]
     Dosage: 50 MG, BID
     Route: 048

REACTIONS (3)
  - CARDIOMYOPATHY [None]
  - ELECTROCARDIOGRAM QT PROLONGED [None]
  - TACHYCARDIA [None]
